FAERS Safety Report 21329401 (Version 1)
Quarter: 2022Q3

REPORT INFORMATION
  Report Type: Spontaneous
  Country: ES (occurrence: ES)
  Receive Date: 20220913
  Receipt Date: 20220913
  Transmission Date: 20221026
  Serious: Yes (Hospitalization)
  Sender: FDA-Public Use
  Company Number: None

PATIENT
  Age: 21 Year
  Sex: Male

DRUGS (9)
  1. QUETIAPINE [Suspect]
     Active Substance: QUETIAPINE
     Indication: Behaviour disorder
     Dosage: 100.0 MG EVERY 24 HOURS
     Dates: start: 20201111, end: 20210610
  2. CYANOCOBALAMIN\FOLIC ACID [Concomitant]
     Active Substance: CYANOCOBALAMIN\FOLIC ACID
     Indication: Epilepsy
     Dosage: STRENGTH: 400/2 MCG, 28 TABLETS, 1.0 TAB EVERY 24H
     Dates: start: 20090825
  3. VALPROATE SODIUM [Concomitant]
     Active Substance: VALPROATE SODIUM
     Indication: Epilepsy
     Dosage: 500 MG AT BREAKFAST, LUNCH AND DINNER, STRENGTH: 500 MG, 100 TABLETS
     Dates: start: 20210615
  4. SEROQUEL [Concomitant]
     Active Substance: QUETIAPINE FUMARATE
     Indication: Autism spectrum disorder
     Dosage: 50 MG DE, STRENGTH: 50 MG, 60 TABLETS
     Dates: start: 20191212
  5. TOPAMAX [Concomitant]
     Active Substance: TOPIRAMATE
     Indication: Epilepsy
     Dosage: 200 MG AT BREAKFAST AND DINNER, STRENGTH: 200 MG, 60 TABLETS
     Dates: start: 20210615
  6. PYRIDOXINE HYDROCHLORIDE [Concomitant]
     Active Substance: PYRIDOXINE HYDROCHLORIDE
     Indication: Epilepsy
     Dosage: 300.0 MG EVERY 48 HOURS, STRENGTH: 300 MG, 20 TABLETS
     Dates: start: 20190125
  7. PERAMPANEL [Concomitant]
     Active Substance: PERAMPANEL
     Indication: Epilepsy
     Dosage: 8.0MG EVERY 24H NOC, STRENGTH: 8 MG, 28 TABLETS
     Dates: start: 20220201
  8. CLOBAZAM [Concomitant]
     Active Substance: CLOBAZAM
     Indication: Epilepsy
     Dosage: 10 MG AT DINNER, STRENGTH: 10 MG, 20 TABLET
     Dates: start: 20210615
  9. TOPAMAX [Concomitant]
     Active Substance: TOPIRAMATE
     Indication: Epilepsy
     Dosage: 100 MG AT BREAKFAST AND DINNER, STRENGTH: 100 MG, 60 TABLETS
     Dates: start: 20210601

REACTIONS (1)
  - Epilepsy [Recovered/Resolved]

NARRATIVE: CASE EVENT DATE: 20210607
